FAERS Safety Report 14436965 (Version 1)
Quarter: 2018Q1

REPORT INFORMATION
  Report Type: Spontaneous
  Country: US (occurrence: US)
  Receive Date: 20180125
  Receipt Date: 20180125
  Transmission Date: 20180509
  Serious: Yes (Hospitalization)
  Sender: FDA-Public Use
  Company Number: None

PATIENT
  Age: 64 Year
  Sex: Male

DRUGS (11)
  1. TESTOST CYP [Concomitant]
     Active Substance: TESTOSTERONE CYPIONATE
  2. PROBIOTIC [Concomitant]
     Active Substance: PROBIOTICS NOS
  3. AMLOPIDPINE [Concomitant]
  4. BACTRIM [Concomitant]
     Active Substance: SULFAMETHOXAZOLE\TRIMETHOPRIM
  5. FOLIC ACID. [Concomitant]
     Active Substance: FOLIC ACID
  6. METHOTREXATE. [Concomitant]
     Active Substance: METHOTREXATE
  7. VIAGRA [Concomitant]
     Active Substance: SILDENAFIL CITRATE
  8. ENBREL [Suspect]
     Active Substance: ETANERCEPT
     Indication: RHEUMATOID ARTHRITIS
     Dosage: 25 MG MON,WED FRIDAY SQ
     Route: 058
     Dates: start: 2015
  9. AMOXICILLIN. [Concomitant]
     Active Substance: AMOXICILLIN
  10. ASPIRIN. [Concomitant]
     Active Substance: ASPIRIN
  11. CIALIS [Concomitant]
     Active Substance: TADALAFIL

REACTIONS (1)
  - Intentional dose omission [None]

NARRATIVE: CASE EVENT DATE: 201712
